APPROVED DRUG PRODUCT: PHOSLO
Active Ingredient: CALCIUM ACETATE
Strength: 667MG
Dosage Form/Route: CAPSULE;ORAL
Application: N021160 | Product #002
Applicant: FRESENIUS MEDICAL CARE RENAL THERAPIES GROUP LLC
Approved: Apr 2, 2001 | RLD: No | RS: No | Type: DISCN